FAERS Safety Report 5016979-3 (Version None)
Quarter: 2006Q2

REPORT INFORMATION
  Report Type: 
  Country: None (occurrence: None)
  Receive Date: 20060602
  Receipt Date: 20051209
  Transmission Date: 20061013
  Serious: Yes (Death)
  Sender: FDA-Public Use
  Company Number: US-BRISTOL-MYERS SQUIBB COMPANY-13211149

PATIENT
  Age: 27 Year
  Sex: Female

DRUGS (3)
  1. ABILIFY [Suspect]
     Indication: BIPOLAR DISORDER
  2. GEODON [Suspect]
  3. LAMICTAL [Suspect]

REACTIONS (2)
  - ARRHYTHMIA [None]
  - CARDIAC ARREST [None]
